FAERS Safety Report 5035807-3 (Version None)
Quarter: 2006Q2

REPORT INFORMATION
  Report Type: 
  Country: None (occurrence: None)
  Receive Date: 20060622
  Receipt Date: 20060609
  Transmission Date: 20061013
  Serious: Yes (Other)
  Sender: FDA-Public Use
  Company Number: TRP_0773_2006

PATIENT
  Age: 36 Year
  Sex: Female

DRUGS (8)
  1. RIBASPHERE [Suspect]
     Indication: HEPATITIS C
     Dosage: DF PO
     Route: 048
     Dates: start: 20060130
  2. PEG-INTRON [Suspect]
     Indication: HEPATITIS C
     Dosage: DF SC
     Route: 058
     Dates: start: 20060130
  3. BUSPAR [Suspect]
     Dosage: DF
  4. LORAZEPAM [Suspect]
     Dosage: DF
  5. ATENOLOL [Concomitant]
  6. PROMETHAZINE HYDROCHLORIDE/ PHENYLEPHRINE HYDROCHLORIDE [Concomitant]
  7. PROTONIX [Concomitant]
  8. ZYPREXA [Concomitant]

REACTIONS (10)
  - BACK PAIN [None]
  - BONE PAIN [None]
  - DIZZINESS [None]
  - FACIAL PAIN [None]
  - HALLUCINATIONS, MIXED [None]
  - HEADACHE [None]
  - INSOMNIA [None]
  - MALAISE [None]
  - MENORRHAGIA [None]
  - VOMITING [None]
